FAERS Safety Report 5815167-8 (Version None)
Quarter: 2008Q3

REPORT INFORMATION
  Report Type: 
  Country: None (occurrence: None)
  Receive Date: 20080718
  Receipt Date: 20080718
  Transmission Date: 20090109
  Serious: Yes (Hospitalization, Other)
  Sender: FDA-Public Use
  Company Number: PHHO2004JP11322

PATIENT
  Sex: Male
  Weight: 54 kg

DRUGS (9)
  1. FTY 720 FTY+CAP [Suspect]
     Indication: RENAL TRANSPLANT
     Dosage: 5MG
     Route: 048
     Dates: start: 20040726, end: 20040826
  2. NEORAL [Suspect]
     Indication: RENAL TRANSPLANT
     Dosage: 140 MG, BID
     Dates: start: 20040728, end: 20040826
  3. MEDROL [Suspect]
     Indication: RENAL TRANSPLANT
     Dosage: 12 MG, QD
     Dates: start: 20040726
  4. DIAZEPAM [Concomitant]
     Dates: start: 20040820, end: 20040826
  5. PARIET [Concomitant]
     Dates: start: 20040729, end: 20040826
  6. BUP-4 [Concomitant]
     Dates: start: 20040817, end: 20040818
  7. MALFA [Concomitant]
     Dates: start: 20040730, end: 20040924
  8. POVIDONE IODINE [Concomitant]
     Dates: start: 20040727, end: 20041019
  9. EPOGIN [Concomitant]

REACTIONS (13)
  - ANURIA [None]
  - ARTERIAL THERAPEUTIC PROCEDURE [None]
  - DECUBITUS ULCER [None]
  - DISSEMINATED INTRAVASCULAR COAGULATION [None]
  - GRAFT DYSFUNCTION [None]
  - INCISIONAL DRAINAGE [None]
  - KLEBSIELLA INFECTION [None]
  - NEPHRECTOMY [None]
  - PERINEPHRIC COLLECTION [None]
  - RENAL ISCHAEMIA [None]
  - SEPSIS [None]
  - URINARY ANASTOMOTIC LEAK [None]
  - URINARY TRACT OPERATION [None]
